FAERS Safety Report 6835699-3 (Version None)
Quarter: 2010Q3

REPORT INFORMATION
  Report Type: 
  Country: None (occurrence: None)
  Receive Date: 20100713
  Receipt Date: 20100707
  Transmission Date: 20110219
  Serious: Yes (Other)
  Sender: FDA-Public Use
  Company Number: NL-AMGEN-KDL419224

PATIENT
  Sex: Female
  Weight: 75 kg

DRUGS (5)
  1. NEULASTA [Suspect]
     Indication: CHEMOTHERAPY
     Dates: start: 20100527, end: 20100527
  2. TAXOTERE [Concomitant]
  3. ADRIAMYCIN PFS [Concomitant]
  4. CYCLOPHOSPHAMIDE [Concomitant]
  5. PANTOZOL [Concomitant]

REACTIONS (4)
  - BONE PAIN [None]
  - INFLUENZA LIKE ILLNESS [None]
  - MYALGIA [None]
  - PALPITATIONS [None]
